FAERS Safety Report 7745476-7 (Version None)
Quarter: 2011Q3

REPORT INFORMATION
  Report Type: 
  Country: None (occurrence: None)
  Receive Date: 20110825
  Receipt Date: 20110623
  Transmission Date: 20111222
  Serious: No
  Sender: FDA-Public Use
  Company Number: 329770

PATIENT
  Age: 57 Year
  Sex: Female
  Weight: 99.3 kg

DRUGS (1)
  1. VICTOZA [Suspect]
     Indication: TYPE 2 DIABETES MELLITUS
     Dosage: SUBCUTANEOUS
     Route: 058
     Dates: start: 20110401

REACTIONS (3)
  - BACK PAIN [None]
  - WEIGHT DECREASED [None]
  - INJECTION SITE REACTION [None]
